FAERS Safety Report 4484283-8 (Version None)
Quarter: 2004Q3

REPORT INFORMATION
  Report Type: 
  Country: None (occurrence: None)
  Receive Date: 20040921
  Receipt Date: 20040204
  Transmission Date: 20050211
  Serious: Yes (Hospitalization, Other)
  Sender: FDA-Public Use
  Company Number: 163-20785-04020078

PATIENT
  Age: 61 Year
  Sex: Male
  Weight: 91.1 kg

DRUGS (7)
  1. THALOMID [Suspect]
     Dosage: 400 MG, QHS, ORAL
     Route: 048
     Dates: start: 20031107
  2. GEMCITABINE (GEMCITABINE) [Suspect]
     Indication: PANCREATIC CARCINOMA
     Dosage: 1000 MG/M2, DAYS 1,8,15 OF 28 DAY CYCLE
     Dates: end: 20040121
  3. COUMADIN [Concomitant]
  4. LACTULOSE [Concomitant]
  5. MIRALAX [Concomitant]
  6. SENOKOT (SENNA FRUIT) (TABLETS) [Concomitant]
  7. COMPAZINE [Concomitant]

REACTIONS (1)
  - DEEP VEIN THROMBOSIS [None]
